FAERS Safety Report 13644075 (Version 1)
Quarter: 2017Q2

REPORT INFORMATION
  Report Type: Spontaneous
  Country: FR (occurrence: FR)
  Receive Date: 20170612
  Receipt Date: 20170612
  Transmission Date: 20170830
  Serious: Yes (Other)
  Sender: FDA-Public Use
  Company Number: FR-BAYER-2017-109891

PATIENT
  Age: 43 Year
  Sex: Female

DRUGS (1)
  1. MIRENA [Suspect]
     Active Substance: LEVONORGESTREL
     Dosage: 20 MCG/24HR, CONT
     Route: 015

REACTIONS (7)
  - Tachycardia [Unknown]
  - Ovarian cyst [Unknown]
  - Depression [Recovered/Resolved]
  - Alopecia [Unknown]
  - Back pain [Unknown]
  - Migraine [Unknown]
  - Loss of libido [Unknown]
